FAERS Safety Report 4755031-9 (Version None)
Quarter: 2005Q3

REPORT INFORMATION
  Report Type: 
  Country: None (occurrence: None)
  Receive Date: 20050829
  Receipt Date: 20040115
  Transmission Date: 20060218
  Serious: Yes (Hospitalization)
  Sender: FDA-Public Use
  Company Number: US-BRISTOL-MYERS SQUIBB COMPANY-12480026

PATIENT
  Age: 37 Year
  Sex: Female

DRUGS (4)
  1. SERZONE [Suspect]
     Route: 048
     Dates: start: 19960101, end: 19990101
  2. HYDROCHLOROTHIAZIDE [Concomitant]
  3. BETAMETHASONE VALERATE [Concomitant]
  4. TRIAMCINOLONE [Concomitant]

REACTIONS (15)
  - AUTOIMMUNE HEPATITIS [None]
  - BACTERIA URINE IDENTIFIED [None]
  - COAGULOPATHY [None]
  - DIPLOPIA [None]
  - DIZZINESS [None]
  - HEPATIC FAILURE [None]
  - INFLAMMATION [None]
  - LUNG INFILTRATION [None]
  - MENTAL STATUS CHANGES [None]
  - NITRITE URINE PRESENT [None]
  - PALPITATIONS [None]
  - PRURITUS [None]
  - STREPTOCOCCAL INFECTION [None]
  - TREMOR [None]
  - URINE KETONE BODY ABSENT [None]
